FAERS Safety Report 16028009 (Version 2)
Quarter: 2019Q1

REPORT INFORMATION
  Report Type: Spontaneous
  Country: IT (occurrence: IT)
  Receive Date: 20190304
  Receipt Date: 20190320
  Transmission Date: 20190418
  Serious: Yes (Other)
  Sender: FDA-Public Use
  Company Number: IT-OREXIGEN THERAPEUTICS, LTD.-2018-005515

PATIENT

DRUGS (1)
  1. MYSIMBA (NALTREXONE HCL/BUPROPION HCL) PROLONGED-RELEASE TABLETS [Suspect]
     Active Substance: BUPROPION HYDROCHLORIDE\NALTREXONE HYDROCHLORIDE
     Indication: OBESITY
     Dosage: 3 DF, QD (TABLETS)
     Route: 048
     Dates: start: 20180415, end: 20180502

REACTIONS (7)
  - Pruritus [Recovering/Resolving]
  - Constipation [Recovering/Resolving]
  - Laryngeal oedema [Recovering/Resolving]
  - Lymphadenopathy [Recovering/Resolving]
  - Abdominal pain [Recovering/Resolving]
  - Urticaria [Recovering/Resolving]
  - Mood altered [Recovering/Resolving]

NARRATIVE: CASE EVENT DATE: 20180502
